FAERS Safety Report 21874833 (Version 4)
Quarter: 2023Q1

REPORT INFORMATION
  Report Type: Spontaneous
  Country: JP (occurrence: None)
  Receive Date: 20230117
  Receipt Date: 20230228
  Transmission Date: 20230418
  Serious: Yes (Death)
  Sender: FDA-Public Use
  Company Number: 2023A011070

PATIENT
  Age: 80 Year
  Sex: Female

DRUGS (1)
  1. EVUSHELD [Suspect]
     Active Substance: CILGAVIMAB\TIXAGEVIMAB
     Indication: COVID-19 prophylaxis
     Dosage: DOSE UNKNOWN
     Route: 030
     Dates: start: 20221122

REACTIONS (2)
  - SARS-CoV-2 test positive [Fatal]
  - Blastic plasmacytoid dendritic cell neoplasia [Fatal]

NARRATIVE: CASE EVENT DATE: 20221224
